FAERS Safety Report 6263218-1 (Version None)
Quarter: 2009Q3

REPORT INFORMATION
  Report Type: 
  Country: None (occurrence: None)
  Receive Date: 20090710
  Receipt Date: 20090706
  Transmission Date: 20100115
  Serious: Yes (Hospitalization, Other)
  Sender: FDA-Public Use
  Company Number: FR-BRISTOL-MYERS SQUIBB COMPANY-14614986

PATIENT
  Sex: Male

DRUGS (2)
  1. ABILIFY [Suspect]
     Indication: PSYCHOTIC DISORDER
     Dosage: ABILIFY WAS TAKEN FOR AROUND 10 DAYS
     Route: 048
  2. DOBUTAMINE HCL [Interacting]
     Indication: CARDIAC DISORDER

REACTIONS (2)
  - CARDIAC FAILURE [None]
  - DRUG INTERACTION [None]
